FAERS Safety Report 8726853 (Version 2)
Quarter: 2012Q4

REPORT INFORMATION
  Report Type: 
  Country: US (occurrence: US)
  Receive Date: 20120816
  Receipt Date: 20121029
  Transmission Date: 20130627
  Serious: Yes (Death, Other)
  Sender: FDA-Public Use
  Company Number: US-ROCHE-1098205

PATIENT
  Sex: Male

DRUGS (2)
  1. ACTIVASE [Suspect]
     Indication: ACUTE MYOCARDIAL INFARCTION
     Route: 065
  2. ACTIVASE [Suspect]
     Indication: CARDIAC ARREST

REACTIONS (8)
  - Respiratory arrest [Fatal]
  - Convulsion [Fatal]
  - Ventricular tachycardia [Fatal]
  - Cardiac arrest [Fatal]
  - Ventricular extrasystoles [Unknown]
  - Bradyarrhythmia [Unknown]
  - Tachyarrhythmia [Unknown]
  - Electrocardiogram P wave abnormal [Unknown]
